FAERS Safety Report 15867506 (Version 2)
Quarter: 2019Q2

REPORT INFORMATION
  Report Type: Report from Study
  Country: US (occurrence: US)
  Receive Date: 20190125
  Receipt Date: 20190408
  Transmission Date: 20190711
  Serious: Yes (Hospitalization)
  Sender: FDA-Public Use
  Company Number: US-JNJFOC-20190130452

PATIENT
  Age: 70 Year
  Sex: Female

DRUGS (20)
  1. RANITIDINE HYDROCHLORIDE. [Concomitant]
     Active Substance: RANITIDINE HYDROCHLORIDE
  2. NORVASC [Concomitant]
     Active Substance: AMLODIPINE BESYLATE
  3. DOMPERIDONE BP POWDER [Concomitant]
  4. MS CONTIN [Concomitant]
     Active Substance: MORPHINE SULFATE
  5. IMBRUVICA [Suspect]
     Active Substance: IBRUTINIB
     Indication: CHRONIC LYMPHOCYTIC LEUKAEMIA
     Route: 048
     Dates: start: 20170911, end: 20180420
  6. ALBUTEROL. [Concomitant]
     Active Substance: ALBUTEROL
  7. KLONOPIN [Concomitant]
     Active Substance: CLONAZEPAM
  8. LOSARTAN. [Concomitant]
     Active Substance: LOSARTAN
  9. POTASSIUM [Concomitant]
     Active Substance: POTASSIUM
  10. NORCO [Concomitant]
     Active Substance: ACETAMINOPHEN\HYDROCODONE BITARTRATE
  11. CYMBALTA [Concomitant]
     Active Substance: DULOXETINE HYDROCHLORIDE
  12. LIDODERM [Concomitant]
     Active Substance: LIDOCAINE
  13. LASIX [Concomitant]
     Active Substance: FUROSEMIDE
  14. ZYRTEC [Concomitant]
     Active Substance: CETIRIZINE HYDROCHLORIDE
  15. TIZANIDINE HCL [Concomitant]
     Active Substance: TIZANIDINE HYDROCHLORIDE
  16. DEXILANT [Concomitant]
     Active Substance: DEXLANSOPRAZOLE
  17. IMBRUVICA [Suspect]
     Active Substance: IBRUTINIB
     Indication: CHRONIC LYMPHOCYTIC LEUKAEMIA
     Route: 048
     Dates: start: 20170909
  18. IMBRUVICA [Suspect]
     Active Substance: IBRUTINIB
     Indication: CHRONIC LYMPHOCYTIC LEUKAEMIA
     Route: 048
     Dates: start: 20180421
  19. PROMETHAZINE HCL [Concomitant]
     Active Substance: PROMETHAZINE HYDROCHLORIDE
  20. CARAFATE [Concomitant]
     Active Substance: SUCRALFATE

REACTIONS (6)
  - Pneumonia [Unknown]
  - Gastrointestinal infection [Unknown]
  - White blood cell count increased [Unknown]
  - Inappropriate schedule of product administration [Unknown]
  - Off label use [Unknown]
  - Urinary tract infection [Unknown]

NARRATIVE: CASE EVENT DATE: 20170911
